FAERS Safety Report 16236205 (Version 1)
Quarter: 2019Q2

REPORT INFORMATION
  Report Type: Spontaneous
  Country: CN (occurrence: CN)
  Receive Date: 20190425
  Receipt Date: 20190425
  Transmission Date: 20190711
  Serious: Yes (Other)
  Sender: FDA-Public Use
  Company Number: CN-BAXTER-2019BAX007972

PATIENT
  Age: 59 Year
  Sex: Female
  Weight: 50 kg

DRUGS (5)
  1. 0.9% SODIUM CHLORIDE INJECTION [Suspect]
     Active Substance: SODIUM CHLORIDE
     Indication: MEDICATION DILUTION
     Dosage: SOLVENT FOR OXIRACETAM
     Route: 041
     Dates: start: 20190409
  2. 0.9% SODIUM CHLORIDE INJECTION [Suspect]
     Active Substance: SODIUM CHLORIDE
     Dosage: SOLVENT FOR OMEPRAZOLE SODIUM
     Route: 041
     Dates: start: 20190409
  3. 20% MANNITOL INJECTION [Suspect]
     Active Substance: MANNITOL
     Indication: HEAD INJURY
     Route: 041
     Dates: start: 20190409, end: 20190409
  4. OXIRACETAM [Suspect]
     Active Substance: OXIRACETAM
     Indication: PRODUCT USED FOR UNKNOWN INDICATION
     Dosage: OXIRACETAM INJECTION 4G IVGTT QD
     Route: 041
     Dates: start: 20190409
  5. OMEPRAZOLE SODIUM [Suspect]
     Active Substance: OMEPRAZOLE SODIUM
     Indication: PRODUCT USED FOR UNKNOWN INDICATION
     Dosage: OMEPRAZOLE SODIUM FOR INJECTION 40MG IVGTT
     Route: 041
     Dates: start: 20190409

REACTIONS (3)
  - Chest discomfort [Recovered/Resolved]
  - Dry mouth [Recovered/Resolved]
  - Chills [Recovered/Resolved]

NARRATIVE: CASE EVENT DATE: 20190409
